FAERS Safety Report 24837322 (Version 3)
Quarter: 2025Q1

REPORT INFORMATION
  Report Type: Spontaneous
  Country: CN (occurrence: CN)
  Receive Date: 20250113
  Receipt Date: 20250128
  Transmission Date: 20250408
  Serious: Yes (Other)
  Sender: PFIZER
  Company Number: CN-PFIZER INC-PV202500002157

PATIENT
  Age: 61 Year
  Sex: Male

DRUGS (6)
  1. CRIZOTINIB [Suspect]
     Active Substance: CRIZOTINIB
     Indication: Lung adenocarcinoma
     Dosage: 250 MG, 2X/DAY
     Route: 048
     Dates: start: 20231208, end: 20250106
  2. REPOTRECTINIB [Concomitant]
     Active Substance: REPOTRECTINIB
  3. DENOSUMAB [Concomitant]
     Active Substance: DENOSUMAB
  4. IOVERSOL [Concomitant]
     Active Substance: IOVERSOL
  5. GADOTERIC ACID MEGLUMINE SALT [Concomitant]
  6. CODEINE PHOSPHATE\IBUPROFEN [Concomitant]
     Active Substance: CODEINE PHOSPHATE\IBUPROFEN

REACTIONS (9)
  - Pneumonitis [Unknown]
  - Pneumonia [Unknown]
  - Ascites [Unknown]
  - Hepatic cyst [Unknown]
  - Renal cyst [Unknown]
  - Adrenomegaly [Unknown]
  - Oedema peripheral [Unknown]
  - Diarrhoea [Unknown]
  - Neoplasm progression [Unknown]

NARRATIVE: CASE EVENT DATE: 20231209
